FAERS Safety Report 10100633 (Version 2)
Quarter: 2014Q2

REPORT INFORMATION
  Report Type: Spontaneous
  Country: PT (occurrence: PT)
  Receive Date: 20140423
  Receipt Date: 20140423
  Transmission Date: 20141212
  Serious: Yes (Other)
  Sender: FDA-Public Use
  Company Number: CHNY2014PT001086

PATIENT
  Sex: Male

DRUGS (1)
  1. VOLTAREN EMULGELEX [Suspect]
     Dosage: UNK
     Route: 065

REACTIONS (3)
  - Dermatitis allergic [Unknown]
  - Blister [Unknown]
  - Skin discolouration [Unknown]
